FAERS Safety Report 8781355 (Version 1)
Quarter: 2012Q4

REPORT INFORMATION
  Report Type: 
  Country: US (occurrence: US)
  Receive Date: 20120913
  Receipt Date: 20120913
  Transmission Date: 20130627
  Serious: Yes (Other)
  Sender: FDA-Public Use
  Company Number: US-PFIZER INC-2012221394

PATIENT
  Sex: Female

DRUGS (2)
  1. TYGACIL [Suspect]
     Indication: ABDOMINAL INFECTION
     Dosage: 100 mg, UNK
     Route: 042
  2. TYGACIL [Suspect]
     Dosage: 50 mg, 2x/day

REACTIONS (1)
  - Hepatic failure [Recovering/Resolving]
